FAERS Safety Report 10813284 (Version 1)
Quarter: 2015Q1

REPORT INFORMATION
  Report Type: Report from Study
  Country: US (occurrence: US)
  Receive Date: 20150218
  Receipt Date: 20150218
  Transmission Date: 20150721
  Serious: No
  Sender: FDA-Public Use
  Company Number: US-ABBVIE-14K-163-1273209-00

PATIENT
  Age: 34 Year
  Sex: Female

DRUGS (7)
  1. TYLENOL [Suspect]
     Active Substance: ACETAMINOPHEN
     Indication: PRODUCT USED FOR UNKNOWN INDICATION
     Dates: start: 201408
  2. BENADRYL [Suspect]
     Active Substance: DIPHENHYDRAMINE HYDROCHLORIDE
     Indication: PRODUCT USED FOR UNKNOWN INDICATION
     Dates: start: 20140815
  3. HUMIRA [Suspect]
     Active Substance: ADALIMUMAB
     Indication: PSORIASIS
     Dosage: DAY ONE
  4. HUMIRA [Suspect]
     Active Substance: ADALIMUMAB
     Dates: start: 201408, end: 20140813
  5. MULTIVITAMINS, PLAIN [Concomitant]
     Active Substance: VITAMINS
     Indication: PRODUCT USED FOR UNKNOWN INDICATION
  6. IBUPROFEN. [Suspect]
     Active Substance: IBUPROFEN
     Indication: PRODUCT USED FOR UNKNOWN INDICATION
     Dates: start: 201408
  7. CLOBETASOL 0.05% [Suspect]
     Active Substance: CLOBETASOL
     Indication: INJECTION SITE REACTION
     Dates: start: 20140813

REACTIONS (15)
  - Drug intolerance [Unknown]
  - Ocular discomfort [Recovered/Resolved]
  - Injection site erythema [Unknown]
  - Injection site pruritus [Unknown]
  - Photophobia [Recovered/Resolved]
  - Peripheral swelling [Unknown]
  - Hyperacusis [Recovered/Resolved]
  - Migraine [Not Recovered/Not Resolved]
  - Limb discomfort [Unknown]
  - Paraesthesia [Unknown]
  - Mobility decreased [Unknown]
  - Hypoaesthesia [Unknown]
  - Headache [Unknown]
  - Injection site swelling [Unknown]
  - Drug ineffective [Unknown]

NARRATIVE: CASE EVENT DATE: 201408
